FAERS Safety Report 8841329 (Version 3)
Quarter: 2013Q2

REPORT INFORMATION
  Report Type: Report from Study
  Country: JP (occurrence: JP)
  Receive Date: 20121015
  Receipt Date: 20130520
  Transmission Date: 20140414
  Serious: Yes (Life-Threatening)
  Sender: FDA-Public Use
  Company Number: JP-PFIZER INC-2012251643

PATIENT
  Age: 83 Year
  Sex: Female
  Weight: 34 kg

DRUGS (9)
  1. XALKORI [Suspect]
     Indication: NON-SMALL CELL LUNG CANCER
     Dosage: 250 MG, 2X/DAY
     Route: 048
     Dates: start: 20120702, end: 20120704
  2. NAIXAN [Concomitant]
     Dosage: 100 MG, 2X/DAY
     Route: 048
     Dates: end: 20120704
  3. BAKUMONDOUTO [Concomitant]
     Dosage: 3 G, 3X/DAY
     Route: 048
     Dates: end: 20120704
  4. HALFDIGOXIN [Concomitant]
     Dosage: 0.125 MG, ONCE A DAY
     Route: 048
     Dates: end: 20120704
  5. OMEPRAL [Concomitant]
     Dosage: 20 MG, ONCE A DAY
     Route: 048
     Dates: end: 20120704
  6. MARZULENE S [Concomitant]
     Dosage: 0.67 G, 3X/DAY
     Route: 048
     Dates: end: 20120704
  7. SELBEX [Concomitant]
     Dosage: 50 MG, 3X/DAY
     Route: 048
     Dates: end: 20120704
  8. DEPAS [Concomitant]
     Dosage: 0.5 MG, 3X/DAY
     Route: 048
     Dates: end: 20120704
  9. LAC B [Concomitant]
     Dosage: 1 G, 3X/DAY
     Route: 048
     Dates: end: 20120704

REACTIONS (1)
  - Interstitial lung disease [Recovering/Resolving]
